FAERS Safety Report 6153837-5 (Version None)
Quarter: 2009Q2

REPORT INFORMATION
  Report Type: 
  Country: None (occurrence: None)
  Receive Date: 20090414
  Receipt Date: 20090401
  Transmission Date: 20091009
  Serious: Yes (Hospitalization, Other)
  Sender: FDA-Public Use
  Company Number: US-BAYER-US-2006-032335

PATIENT
  Age: 50 Year
  Sex: Female

DRUGS (8)
  1. BETASERON [Suspect]
     Indication: SECONDARY PROGRESSIVE MULTIPLE SCLEROSIS
     Route: 058
     Dates: start: 20070615, end: 20070901
  2. BETASERON [Suspect]
     Dosage: TOTAL DAILY DOSE: 4 MIU
     Route: 058
     Dates: start: 20070914, end: 20081001
  3. BETASERON [Suspect]
     Dosage: TOTAL DAILY DOSE: 2 MIU
     Route: 058
     Dates: start: 20061019, end: 20061024
  4. BETASERON [Suspect]
     Dosage: TOTAL DAILY DOSE: 4 MIU
     Route: 058
     Dates: start: 20061024
  5. BETASERON [Suspect]
     Route: 058
     Dates: end: 20070201
  6. NOVANTRONE [Suspect]
     Indication: MULTIPLE SCLEROSIS
     Dates: start: 20081210
  7. COPAXONE [Concomitant]
  8. VICODIN [Concomitant]

REACTIONS (14)
  - ALOPECIA [None]
  - ANGER [None]
  - DEPRESSION [None]
  - DISSOCIATION [None]
  - EYE HAEMORRHAGE [None]
  - FLUSHING [None]
  - INTENTIONAL SELF-INJURY [None]
  - MOOD SWINGS [None]
  - MULTIPLE SCLEROSIS [None]
  - MULTIPLE SCLEROSIS RELAPSE [None]
  - NAUSEA [None]
  - OCULAR HYPERAEMIA [None]
  - SUICIDE ATTEMPT [None]
  - TRIGEMINAL NEURALGIA [None]
